FAERS Safety Report 18443994 (Version 4)
Quarter: 2021Q2

REPORT INFORMATION
  Report Type: Report from Study
  Country: US (occurrence: US)
  Receive Date: 20201030
  Receipt Date: 20210401
  Transmission Date: 20210717
  Serious: Yes (Hospitalization)
  Sender: FDA-Public Use
  Company Number: US-INSMED, INC.-US-INS-20-01578

PATIENT
  Age: 66 Year
  Sex: Female

DRUGS (3)
  1. ARIKAYCE [Suspect]
     Active Substance: AMIKACIN
     Indication: MYCOBACTERIUM AVIUM COMPLEX INFECTION
     Dosage: 590 MILLIGRAM, QD
     Route: 055
     Dates: start: 20200811
  2. OXYGEN. [Concomitant]
     Active Substance: OXYGEN
     Indication: PRODUCT USED FOR UNKNOWN INDICATION
  3. ARIKAYCE [Suspect]
     Active Substance: AMIKACIN
     Dosage: 590 MILLIGRAM, UNK
     Route: 055
     Dates: end: 2021

REACTIONS (5)
  - Pneumonia [Recovering/Resolving]
  - Intentional product misuse [Unknown]
  - Hospitalisation [Unknown]
  - Therapy interrupted [Unknown]
  - Cough [Recovered/Resolved]

NARRATIVE: CASE EVENT DATE: 20200811
